FAERS Safety Report 5131625-6 (Version None)
Quarter: 2006Q4

REPORT INFORMATION
  Report Type: 
  Country: None (occurrence: None)
  Receive Date: 20061016
  Receipt Date: 20061004
  Transmission Date: 20070319
  Serious: Yes (Other)
  Sender: FDA-Public Use
  Company Number: HQWYE575204OCT06

PATIENT
  Age: 24 Month
  Sex: Male

DRUGS (14)
  1. ANCARON (AMIODARONE, UNSPEC) [Suspect]
     Indication: VENTRICULAR TACHYCARDIA
     Dosage: 100 MG 1X PER 1 DAY; NASOGASTRIC (SEE IMAGE)
     Route: 045
     Dates: start: 20060905, end: 20060908
  2. ANCARON (AMIODARONE, UNSPEC) [Suspect]
     Indication: VENTRICULAR TACHYCARDIA
     Dosage: 100 MG 1X PER 1 DAY; NASOGASTRIC (SEE IMAGE)
     Route: 045
     Dates: start: 20060909, end: 20060912
  3. ALDACTONE [Concomitant]
  4. WARFARIN SODIUM [Concomitant]
  5. PRECEDEX [Concomitant]
  6. MILRILA (MILRINONE) [Concomitant]
  7. DORMICUM ^ROCHE^ (MADAZOLAM MALEATE) [Concomitant]
  8. LIDOCAINE [Concomitant]
  9. POTASSIUM CHLORIDE [Concomitant]
  10. HEPARIN [Concomitant]
  11. XYLOCAINE [Concomitant]
  12. PHENOBARBITAL TAB [Concomitant]
  13. LASIX [Concomitant]
  14. ASPIRIN [Concomitant]

REACTIONS (3)
  - ACUTE RESPIRATORY DISTRESS SYNDROME [None]
  - PNEUMONIA [None]
  - POST PROCEDURAL COMPLICATION [None]
